FAERS Safety Report 14120659 (Version 1)
Quarter: 2017Q4

REPORT INFORMATION
  Report Type: Spontaneous
  Country: TR (occurrence: TR)
  Receive Date: 20171024
  Receipt Date: 20171024
  Transmission Date: 20180321
  Serious: Yes (Hospitalization)
  Sender: FDA-Public Use
  Company Number: TR-MYLANLABS-2017M1066505

PATIENT
  Age: 37 Year
  Sex: Female

DRUGS (1)
  1. OLANZAPINE. [Suspect]
     Active Substance: OLANZAPINE
     Indication: MAJOR DEPRESSION
     Route: 065

REACTIONS (4)
  - Maternal exposure before pregnancy [Unknown]
  - Rebound psychosis [Recovered/Resolved]
  - Negativism [Recovered/Resolved]
  - Bladder dilatation [Recovered/Resolved]
